FAERS Safety Report 9639259 (Version 2)
Quarter: 2013Q4

REPORT INFORMATION
  Report Type: Spontaneous
  Country: US (occurrence: None)
  Receive Date: 20131011
  Receipt Date: 20131113
  Transmission Date: 20140711
  Serious: Yes (Other)
  Sender: FDA-Public Use
  Company Number: 42608

PATIENT
  Age: 54 Year
  Sex: Female
  Weight: 116.12 kg

DRUGS (9)
  1. GLASSIA [Suspect]
     Indication: ALPHA-1 ANTI-TRYPSIN DEFICIENCY
     Route: 042
     Dates: start: 20130327, end: 20130928
  2. RESTORIL [Concomitant]
  3. COZAAR [Concomitant]
  4. SEROQUEL [Concomitant]
  5. SYNTHROID [Concomitant]
  6. GLUCOPHAGE [Concomitant]
  7. TOPIRAGEN [Concomitant]
  8. LEVAQUIN [Concomitant]
  9. CLONIDINE [Concomitant]

REACTIONS (9)
  - Local swelling [None]
  - Ear haemorrhage [None]
  - Blood pressure increased [None]
  - Local swelling [None]
  - Blood glucose increased [None]
  - Infusion site mass [None]
  - Dyspnoea [None]
  - Musculoskeletal stiffness [None]
  - Musculoskeletal stiffness [None]
